FAERS Safety Report 19187427 (Version 1)
Quarter: 2021Q2

REPORT INFORMATION
  Report Type: Report from Study
  Country: US (occurrence: US)
  Receive Date: 20210427
  Receipt Date: 20210427
  Transmission Date: 20210717
  Serious: No
  Sender: FDA-Public Use
  Company Number: US-AGIOS-2104US02697

PATIENT

DRUGS (1)
  1. TIBSOVO [Suspect]
     Active Substance: IVOSIDENIB
     Indication: BRAIN NEOPLASM MALIGNANT
     Dosage: 250 MILLIGRAM, 2 TABLETS (500 MG), QD
     Route: 048
     Dates: start: 202009

REACTIONS (13)
  - Fatigue [Unknown]
  - Off label use [Unknown]
  - Arthralgia [Unknown]
  - Dry skin [Unknown]
  - Constipation [Unknown]
  - Flatulence [Unknown]
  - Dry eye [Unknown]
  - Abnormal faeces [Unknown]
  - Diarrhoea [Unknown]
  - Dehydration [Unknown]
  - Dry mouth [Unknown]
  - Muscle spasms [Unknown]
  - Urine odour abnormal [Unknown]

NARRATIVE: CASE EVENT DATE: 202009
